FAERS Safety Report 5071636-2 (Version None)
Quarter: 2006Q3

REPORT INFORMATION
  Report Type: 
  Country: None (occurrence: None)
  Receive Date: 20060804
  Receipt Date: 20060620
  Transmission Date: 20061208
  Serious: Yes (Other)
  Sender: FDA-Public Use
  Company Number: CH-MERCK-0606CHE00008

PATIENT
  Age: 64 Year
  Sex: Male
  Weight: 70 kg

DRUGS (9)
  1. INVANZ [Suspect]
     Indication: PNEUMONIA BACTERIAL
     Route: 042
     Dates: start: 20060612, end: 20060613
  2. FENTANYL [Concomitant]
     Route: 065
  3. CORDARONE [Concomitant]
     Route: 065
     Dates: start: 20060613
  4. KLACID [Suspect]
     Indication: PNEUMONIA BACTERIAL
     Route: 042
     Dates: start: 20060612
  5. PHYTONADIONE [Concomitant]
     Route: 065
  6. MAGNESIUM (UNSPECIFIED) [Concomitant]
     Route: 065
  7. LIQUAEMIN INJ [Concomitant]
     Route: 065
  8. PRIMPERAN TAB [Concomitant]
     Route: 042
     Dates: start: 20060612
  9. SUFENTANIL CITRATE [Suspect]
     Route: 042
     Dates: start: 20060612

REACTIONS (6)
  - ALKALOSIS [None]
  - ATRIAL FLUTTER [None]
  - EPILEPSY [None]
  - GRAND MAL CONVULSION [None]
  - HYPOXIC ENCEPHALOPATHY [None]
  - MYOCLONUS [None]
